FAERS Safety Report 4345716-0 (Version None)
Quarter: 2004Q2

REPORT INFORMATION
  Report Type: 
  Country: None (occurrence: None)
  Receive Date: 20040421
  Receipt Date: 20040412
  Transmission Date: 20050107
  Serious: Yes (Hospitalization)
  Sender: FDA-Public Use
  Company Number: 2004003704

PATIENT
  Age: 98 Year
  Sex: Female

DRUGS (8)
  1. TIKOSYN [Suspect]
     Indication: ATRIAL FIBRILLATION
     Dosage: 125 MCG DAILY ORAL
     Route: 048
  2. FAMOTIDINE [Concomitant]
  3. GLYCERYL TRINITRATE [Concomitant]
  4. FUROSEMIDE [Concomitant]
  5. METOPROLOL TARTRATE [Concomitant]
  6. LIBRAX [Concomitant]
  7. ISOSORBIDE MONONITRATE [Concomitant]
  8. CALCITONIN-SALMON [Concomitant]

REACTIONS (2)
  - CEREBROVASCULAR ACCIDENT [None]
  - PNEUMONIA ASPIRATION [None]
